FAERS Safety Report 7249406-6 (Version None)
Quarter: 2011Q1

REPORT INFORMATION
  Report Type: 
  Country: None (occurrence: None)
  Receive Date: 20110128
  Receipt Date: 20101201
  Transmission Date: 20110831
  Serious: Yes (Hospitalization, Other)
  Sender: FDA-Public Use
  Company Number: US-BAYER-201030273NA

PATIENT
  Sex: Female
  Weight: 113.38 kg

DRUGS (13)
  1. OCELLA [Suspect]
     Indication: PRODUCT USED FOR UNKNOWN INDICATION
     Route: 048
     Dates: start: 20080701, end: 20080801
  2. GLUCOSAMINE [Concomitant]
     Indication: ARTHRALGIA
     Dosage: UNK UNK, QD
     Route: 048
  3. HYDROCODONE [Concomitant]
     Dosage: UNK UNK, QID
  4. PHENYTOIN [Concomitant]
     Dosage: 200 MG, OM
  5. YASMIN [Suspect]
     Indication: MENSTRUATION IRREGULAR
     Dosage: UNK UNK, QD
     Dates: start: 20080716, end: 20080801
  6. IRON [Concomitant]
     Indication: ANAEMIA
     Dosage: UNK UNK, QD
     Route: 048
  7. FERROUS SULFATE TAB [Concomitant]
     Dosage: 325 MG, QD
  8. CALCIUM D [Concomitant]
     Dosage: UNK UNK, QD
     Route: 048
  9. PHENYTOIN [Concomitant]
     Dosage: 300 MG, HS
  10. YAZ [Suspect]
  11. MULTI-VITAMINS [Concomitant]
     Indication: ARTHRALGIA
     Dosage: UNK UNK, QD
     Route: 048
  12. BENADRYL [Concomitant]
     Dosage: 50 MG, UNK
  13. PEPCID [Concomitant]
     Dosage: 20 MG, BID

REACTIONS (26)
  - HEMICEPHALALGIA [None]
  - PELVIC VENOUS THROMBOSIS [None]
  - HYPERCOAGULATION [None]
  - CONFUSIONAL STATE [None]
  - METRORRHAGIA [None]
  - SOMNOLENCE [None]
  - PAIN IN EXTREMITY [None]
  - BRAIN OEDEMA [None]
  - PERSONALITY DISORDER [None]
  - DEPRESSED LEVEL OF CONSCIOUSNESS [None]
  - PULMONARY EMBOLISM [None]
  - CEREBRAL HAEMORRHAGE TRAUMATIC [None]
  - MOOD SWINGS [None]
  - INTRACRANIAL VENOUS SINUS THROMBOSIS [None]
  - THROMBOPHLEBITIS SUPERFICIAL [None]
  - HYPOACUSIS [None]
  - PULMONARY MASS [None]
  - OEDEMA PERIPHERAL [None]
  - APHASIA [None]
  - EMOTIONAL DISTRESS [None]
  - BRAIN CONTUSION [None]
  - CONVERSION DISORDER [None]
  - LETHARGY [None]
  - AMNESIA [None]
  - CEREBROVASCULAR ACCIDENT [None]
  - DEEP VEIN THROMBOSIS [None]
